FAERS Safety Report 14870581 (Version 3)
Quarter: 2018Q3

REPORT INFORMATION
  Report Type: Spontaneous
  Country: US (occurrence: US)
  Receive Date: 20180509
  Receipt Date: 20180814
  Transmission Date: 20181010
  Serious: Yes (Hospitalization)
  Sender: FDA-Public Use
  Company Number: US-PFIZER INC-2018188060

PATIENT
  Age: 72 Year
  Sex: Female

DRUGS (1)
  1. MENEST [Suspect]
     Active Substance: ESTROGENS, ESTERIFIED
     Indication: HYSTERECTOMY
     Dosage: 1.25 MG, 1X/DAY
     Dates: end: 20180508

REACTIONS (8)
  - Nervousness [Unknown]
  - Fibromyalgia [Unknown]
  - Feeling abnormal [Unknown]
  - Allergy to chemicals [Unknown]
  - Malaise [Unknown]
  - Pain [Unknown]
  - Insomnia [Unknown]
  - Blood test abnormal [Unknown]
